FAERS Safety Report 9323316 (Version 2)
Quarter: 2013Q4

REPORT INFORMATION
  Report Type: Spontaneous
  Country: US (occurrence: US)
  Receive Date: 20130603
  Receipt Date: 20131122
  Transmission Date: 20140711
  Serious: Yes (Hospitalization, Other)
  Sender: FDA-Public Use
  Company Number: US-B.I. PHARMACEUTICALS,INC./RIDGEFIELD-2013-BI-14918BP

PATIENT
  Sex: Male
  Weight: 143.79 kg

DRUGS (11)
  1. PRADAXA [Suspect]
     Indication: ATRIAL FIBRILLATION
     Dosage: 150 MG
     Dates: start: 20120326, end: 20120718
  2. GLUCOPHAGE [Concomitant]
     Dosage: 200 MG
  3. TENORMIN [Concomitant]
     Dosage: 25 MG
  4. LIPITOR [Concomitant]
     Dosage: 80 MG
  5. CORDARONE [Concomitant]
     Dosage: 800 MG
  6. ASPIRIN [Concomitant]
     Dosage: 325 MG
  7. AVODART [Concomitant]
     Dosage: 0.05 MG
  8. ZESTRIL [Concomitant]
     Dosage: 5 MG
  9. PROTANDIM [Concomitant]
     Indication: SUPPLEMENTATION THERAPY
  10. LASIX [Concomitant]
     Dosage: 160 MG
  11. ALDACTONE [Concomitant]
     Dosage: 100 MG

REACTIONS (7)
  - Upper gastrointestinal haemorrhage [Unknown]
  - Anaemia [Unknown]
  - Renal failure acute [Recovered/Resolved]
  - Shock [Unknown]
  - Epistaxis [Unknown]
  - Coagulopathy [Unknown]
  - Toxicity to various agents [Unknown]
